FAERS Safety Report 16145894 (Version 1)
Quarter: 2019Q2

REPORT INFORMATION
  Report Type: Spontaneous
  Country: FR (occurrence: FR)
  Receive Date: 20190402
  Receipt Date: 20190402
  Transmission Date: 20190711
  Serious: Yes (Other)
  Sender: FDA-Public Use
  Company Number: FR-RECORDATI RARE DISEASES INC.-FR-R13005-19-00079

PATIENT
  Age: 18 Year
  Sex: Male
  Weight: 51 kg

DRUGS (4)
  1. VINCRISTINE [Suspect]
     Active Substance: VINCRISTINE
     Indication: RHABDOMYOSARCOMA
     Route: 041
     Dates: start: 20180419, end: 20180917
  2. IFOSFAMIDE. [Suspect]
     Active Substance: IFOSFAMIDE
     Indication: RHABDOMYOSARCOMA
     Route: 041
     Dates: start: 20180419, end: 20180625
  3. BACTRIM [Concomitant]
     Active Substance: SULFAMETHOXAZOLE\TRIMETHOPRIM
     Indication: PRODUCT USED FOR UNKNOWN INDICATION
     Route: 048
  4. COSMEGEN [Suspect]
     Active Substance: DACTINOMYCIN
     Indication: RHABDOMYOSARCOMA
     Route: 040
     Dates: start: 20180419, end: 20181008

REACTIONS (8)
  - Vomiting [Recovered/Resolved]
  - Fatigue [Recovered/Resolved]
  - Leukopenia [Recovered/Resolved]
  - Nausea [Recovered/Resolved]
  - Thrombocytopenia [Recovered/Resolved]
  - Off label use [Unknown]
  - Odynophagia [Recovered/Resolved]
  - Neutropenia [Recovered/Resolved]

NARRATIVE: CASE EVENT DATE: 201804
